FAERS Safety Report 7940135-X (Version None)
Quarter: 2011Q4

REPORT INFORMATION
  Report Type: 
  Country: None (occurrence: None)
  Receive Date: 20111125
  Receipt Date: 20111112
  Transmission Date: 20120403
  Serious: Yes (Other)
  Sender: FDA-Public Use
  Company Number: JP-ELI_LILLY_AND_COMPANY-JP201109003820

PATIENT
  Age: 85 Year
  Sex: Female

DRUGS (2)
  1. TERIPARATIDE [Suspect]
     Dosage: UNK
     Route: 058
     Dates: start: 20111001, end: 20111001
  2. TERIPARATIDE [Suspect]
     Dosage: UNK
     Route: 058
     Dates: start: 20110908, end: 20111006

REACTIONS (6)
  - MALAISE [None]
  - FATIGUE [None]
  - BREAST CANCER [None]
  - CHEST DISCOMFORT [None]
  - DRUG DOSE OMISSION [None]
  - DECREASED APPETITE [None]
